FAERS Safety Report 14612144 (Version 1)
Quarter: 2018Q1

REPORT INFORMATION
  Report Type: Spontaneous
  Country: US (occurrence: US)
  Receive Date: 20180308
  Receipt Date: 20180308
  Transmission Date: 20180509
  Serious: Yes (Other)
  Sender: FDA-Public Use
  Company Number: PHEH2018US007847

PATIENT

DRUGS (1)
  1. TEGRETOL [Suspect]
     Active Substance: CARBAMAZEPINE
     Indication: SEIZURE
     Route: 065

REACTIONS (6)
  - Tibia fracture [Unknown]
  - Coagulation time shortened [Unknown]
  - Osteoporosis [Unknown]
  - Fibula fracture [Unknown]
  - Fall [Unknown]
  - Asthenia [Unknown]
